FAERS Safety Report 11905004 (Version 1)
Quarter: 2016Q1

REPORT INFORMATION
  Report Type: Spontaneous
  Country: US (occurrence: US)
  Receive Date: 20160111
  Receipt Date: 20160111
  Transmission Date: 20160526
  Serious: No
  Sender: FDA-Public Use
  Company Number: US-LUPIN PHARMACEUTICALS INC.-E2B_00003957

PATIENT
  Age: 84 Year
  Sex: Female
  Weight: 52.21 kg

DRUGS (4)
  1. DIGOXIN. [Concomitant]
     Active Substance: DIGOXIN
     Indication: ATRIAL FIBRILLATION
  2. DILTIAZEM [Concomitant]
     Active Substance: DILTIAZEM
     Indication: ATRIAL FIBRILLATION
  3. TRAMADOL HYDROCHLORIDE EXTENDED-RELEASE TABLETS 100 MG [Suspect]
     Active Substance: TRAMADOL HYDROCHLORIDE
     Indication: PAIN
     Dates: start: 20150715, end: 20150715
  4. TRAMADOL HYDROCHLORIDE EXTENDED-RELEASE TABLETS 100 MG [Suspect]
     Active Substance: TRAMADOL HYDROCHLORIDE
     Dates: start: 20150716, end: 20150716

REACTIONS (1)
  - Urticaria [Recovered/Resolved]

NARRATIVE: CASE EVENT DATE: 20150715
